FAERS Safety Report 12634672 (Version 3)
Quarter: 2016Q3

REPORT INFORMATION
  Report Type: Spontaneous
  Country: JP (occurrence: JP)
  Receive Date: 20160809
  Receipt Date: 20160926
  Transmission Date: 20161109
  Serious: Yes (Other)
  Sender: FDA-Public Use
  Company Number: JP-PFIZER INC-2016377839

PATIENT
  Age: 78 Year
  Sex: Male

DRUGS (4)
  1. VINBLASTINE [Suspect]
     Active Substance: VINBLASTINE
     Indication: TRANSITIONAL CELL CARCINOMA
     Dosage: UNK (TWO COURSES)
     Dates: start: 201410
  2. METHOTREXATE. [Suspect]
     Active Substance: METHOTREXATE
     Indication: TRANSITIONAL CELL CARCINOMA
     Dosage: UNK (TWO COURSES)
     Dates: start: 201410
  3. CARBOPLATIN. [Suspect]
     Active Substance: CARBOPLATIN
     Indication: TRANSITIONAL CELL CARCINOMA
     Dosage: UNK (TWO COURSES)
     Dates: start: 201410
  4. EPIRUBICIN HCL [Suspect]
     Active Substance: EPIRUBICIN HYDROCHLORIDE
     Indication: TRANSITIONAL CELL CARCINOMA
     Dosage: UNK (TWO COURSES)
     Dates: start: 201410

REACTIONS (1)
  - Major depression [Unknown]
